FAERS Safety Report 13122754 (Version 1)
Quarter: 2017Q1

REPORT INFORMATION
  Report Type: Report from Study
  Country: JP (occurrence: JP)
  Receive Date: 20170117
  Receipt Date: 20170117
  Transmission Date: 20170428
  Serious: Yes (Other)
  Sender: FDA-Public Use
  Company Number: JP-MYLANLABS-2017M1002024

PATIENT

DRUGS (2)
  1. BORTEZOMIB [Suspect]
     Active Substance: BORTEZOMIB
     Indication: PLASMA CELL MYELOMA
     Dosage: 1.3 MG/M 2 ON DAYS 1,4,8 AND 11 IN A 21 DAY CYCLE
     Route: 041
  2. DOXORUBICIN [Suspect]
     Active Substance: DOXORUBICIN
     Indication: PLASMA CELL MYELOMA
     Dosage: 30 MG/M 2 ON DAY 4 IN A 21 DAY CYCLE
     Route: 041

REACTIONS (12)
  - C-reactive protein increased [Unknown]
  - Dysgeusia [Unknown]
  - Pigmentation disorder [Unknown]
  - Haemoglobin decreased [Unknown]
  - Peripheral sensory neuropathy [Unknown]
  - Neutropenia [Unknown]
  - Leukopenia [Unknown]
  - Neuralgia [Unknown]
  - Blood potassium increased [Unknown]
  - Thrombocytopenia [Recovering/Resolving]
  - Orthostatic hypotension [Unknown]
  - Vomiting [Unknown]
